FAERS Safety Report 12865133 (Version 1)
Quarter: 2016Q4

REPORT INFORMATION
  Report Type: Spontaneous
  Country: US (occurrence: US)
  Receive Date: 20161020
  Receipt Date: 20161020
  Transmission Date: 20170207
  Serious: No
  Sender: FDA-Public Use
  Company Number: US-TEVA-609057USA

PATIENT
  Sex: Female
  Weight: 49.49 kg

DRUGS (3)
  1. CIPRO [Concomitant]
     Active Substance: CIPROFLOXACIN HYDROCHLORIDE
     Indication: PROPHYLAXIS AGAINST DIARRHOEA
     Dosage: 1000 MILLIGRAM DAILY;
  2. ESTRADIOL. [Suspect]
     Active Substance: ESTRADIOL
     Indication: VULVOVAGINAL DRYNESS
     Dosage: 1 MILLIGRAM DAILY;
     Route: 065
     Dates: start: 2014
  3. ESTRADIOL. [Suspect]
     Active Substance: ESTRADIOL
     Indication: HOT FLUSH

REACTIONS (5)
  - Drug ineffective [Unknown]
  - Pigmentation disorder [Unknown]
  - Hyperhidrosis [Unknown]
  - Vulvovaginal dryness [Unknown]
  - Libido decreased [Unknown]
